FAERS Safety Report 18122458 (Version 1)
Quarter: 2020Q3

REPORT INFORMATION
  Report Type: Spontaneous
  Country: US (occurrence: US)
  Receive Date: 20200807
  Receipt Date: 20200807
  Transmission Date: 20201103
  Serious: Yes (Other)
  Sender: FDA-Public Use
  Company Number: US-BRISTOL-MYERS SQUIBB COMPANY-BMS-2020-063269

PATIENT
  Age: 38 Year
  Sex: Female

DRUGS (1)
  1. NIVOLUMAB [Suspect]
     Active Substance: NIVOLUMAB
     Indication: ADRENAL GLAND CANCER METASTATIC
     Dosage: 240 MILLIGRAM, Q2WK
     Route: 065
     Dates: start: 201803

REACTIONS (2)
  - Intentional product use issue [Unknown]
  - Polymyalgia rheumatica [Recovering/Resolving]
